FAERS Safety Report 4381175-X (Version None)
Quarter: 2004Q2

REPORT INFORMATION
  Report Type: 
  Country: None (occurrence: None)
  Receive Date: 20040617
  Receipt Date: 20040617
  Transmission Date: 20050107
  Serious: Yes (Life-Threatening)
  Sender: FDA-Public Use
  Company Number: None

PATIENT
  Age: 57 Year
  Sex: Female
  Weight: 82 kg

DRUGS (4)
  1. MONOPRIL [Suspect]
     Indication: BLOOD PRESSURE INCREASED
     Dosage: 10 MG X 1 DOSE
     Dates: start: 20040504
  2. MONOPRIL [Suspect]
     Dosage: 20 MG X 1 DOSE
     Dates: start: 20040504
  3. LOTREL [Concomitant]
  4. ZYPREXA [Concomitant]

REACTIONS (1)
  - ANGIONEUROTIC OEDEMA [None]
